FAERS Safety Report 8381525-3 (Version None)
Quarter: 2012Q2

REPORT INFORMATION
  Report Type: 
  Country: None (occurrence: None)
  Receive Date: 20120523
  Receipt Date: 20120514
  Transmission Date: 20120825
  Serious: Yes (Hospitalization, Other)
  Sender: FDA-Public Use
  Company Number: JP-ROCHE-1001736

PATIENT
  Sex: Female
  Weight: 38 kg

DRUGS (25)
  1. PREDNISOLONE [Concomitant]
     Indication: RHEUMATOID ARTHRITIS
     Dosage: 4.5T3 X M2 T1.5 A1.0
     Route: 048
  2. CLARITHROMYCIN [Concomitant]
     Indication: ATYPICAL MYCOBACTERIAL INFECTION
     Route: 048
     Dates: start: 20100501
  3. EPINASTINE HYDROCHLORIDE [Concomitant]
     Indication: ERYTHEMA
     Route: 048
     Dates: start: 20100916
  4. ALINAMIN F [Concomitant]
     Indication: INTERCOSTAL NEURALGIA
     Route: 048
     Dates: start: 20110127
  5. CLONAZEPAM [Concomitant]
     Route: 048
     Dates: start: 20100909
  6. LOXONIN [Concomitant]
     Indication: RHEUMATOID ARTHRITIS
     Route: 048
     Dates: start: 20101210
  7. FERRUM [Concomitant]
     Indication: ANAEMIA
     Route: 048
     Dates: start: 20120110
  8. ACTEMRA [Suspect]
     Indication: RHEUMATOID ARTHRITIS
     Route: 041
     Dates: start: 20100826, end: 20110308
  9. MAALOX ADVANCED [Concomitant]
     Indication: GASTROINTESTINAL DISORDER
     Route: 048
     Dates: start: 20110420
  10. DIOVAN [Concomitant]
     Indication: HYPERTENSION
     Route: 048
     Dates: start: 20101216
  11. NORVASC [Concomitant]
     Indication: HYPERTENSION
     Route: 048
     Dates: start: 20111108
  12. PREDNISOLONE [Concomitant]
     Route: 048
     Dates: start: 20110302
  13. ZOLPIDEM [Concomitant]
     Indication: INSOMNIA
     Route: 048
     Dates: start: 20100922, end: 20110101
  14. MAGMITT [Concomitant]
     Route: 048
  15. DAI-KENCHU-TO [Concomitant]
     Indication: ABDOMINAL SYMPTOM
     Route: 048
     Dates: start: 20110107
  16. XYZAL [Concomitant]
     Route: 048
     Dates: start: 20110207
  17. PROGRAF [Concomitant]
     Indication: RHEUMATOID ARTHRITIS
     Route: 048
     Dates: start: 20110214
  18. OMEPRAZOLE [Concomitant]
     Route: 048
     Dates: start: 20100805, end: 20101209
  19. COTRIM [Concomitant]
     Indication: PROPHYLAXIS
     Route: 048
     Dates: start: 20100816
  20. LYRICA [Concomitant]
     Indication: NEURALGIA
     Route: 048
     Dates: start: 20101214
  21. SELBEX [Concomitant]
     Route: 048
     Dates: start: 20111209
  22. GASMOTIN [Concomitant]
     Route: 048
     Dates: start: 20111209
  23. LANSOPRAZOLE [Concomitant]
     Route: 048
     Dates: start: 20101210
  24. MUCOSTA [Concomitant]
     Indication: GASTROINTESTINAL DISORDER
     Route: 048
     Dates: start: 20101210
  25. FORTEO [Concomitant]
     Indication: SPINAL COMPRESSION FRACTURE
     Route: 058
     Dates: start: 20111012

REACTIONS (6)
  - ANAL PROLAPSE [None]
  - HAEMORRHOIDAL HAEMORRHAGE [None]
  - RIB FRACTURE [None]
  - DYSLIPIDAEMIA [None]
  - ZYGOMYCOSIS [None]
  - FEMUR FRACTURE [None]
